FAERS Safety Report 7701742-2 (Version None)
Quarter: 2011Q3

REPORT INFORMATION
  Report Type: 
  Country: None (occurrence: None)
  Receive Date: 20110822
  Receipt Date: 20110816
  Transmission Date: 20111222
  Serious: Yes (Other)
  Sender: FDA-Public Use
  Company Number: US-AMGEN-USASP2011041752

PATIENT
  Sex: Female

DRUGS (1)
  1. ENBREL [Suspect]
     Indication: RHEUMATOID ARTHRITIS
     Dosage: 50 MG, QWK
     Dates: start: 20020201

REACTIONS (6)
  - INJECTION SITE SWELLING [None]
  - OSTEOPOROSIS [None]
  - INJECTION SITE REACTION [None]
  - INJECTION SITE PRURITUS [None]
  - SPINAL COMPRESSION FRACTURE [None]
  - INJECTION SITE ERYTHEMA [None]
